FAERS Safety Report 5855909-9 (Version None)
Quarter: 2008Q3

REPORT INFORMATION
  Report Type: 
  Country: None (occurrence: None)
  Receive Date: 20080825
  Receipt Date: 20080811
  Transmission Date: 20090109
  Serious: Yes (Hospitalization)
  Sender: FDA-Public Use
  Company Number: US-TYCO HEALTHCARE/MALLINCKRODT-T200801281

PATIENT

DRUGS (1)
  1. OXYCODONE HCL [Suspect]
     Dates: start: 20070801

REACTIONS (1)
  - MEDICATION ERROR [None]
